FAERS Safety Report 24420429 (Version 2)
Quarter: 2024Q4

REPORT INFORMATION
  Report Type: Report from Study
  Country: US (occurrence: US)
  Receive Date: 20241010
  Receipt Date: 20241018
  Transmission Date: 20250115
  Serious: No
  Sender: ROCHE
  Company Number: US-ROCHE-3538302

PATIENT
  Age: 62 Year
  Sex: Male

DRUGS (2)
  1. ACTIVASE [Suspect]
     Active Substance: ALTEPLASE
     Indication: Cardiovascular disorder
     Dosage: STRENGTH: 50 MG/ 50 ML?DATE OF TREATMENT REPORTED ON 04/MAR/2024?VIAL
     Route: 065
     Dates: start: 20240304
  2. ACTIVASE [Suspect]
     Active Substance: ALTEPLASE
     Indication: Muscle infarction
     Dosage: DATE OF TREATMENT REPORTED ON 06/MAR/2024?VIAL
     Route: 065
     Dates: start: 20240306

REACTIONS (2)
  - Off label use [Unknown]
  - No adverse event [Unknown]
